FAERS Safety Report 9883065 (Version 1)
Quarter: 2014Q1

REPORT INFORMATION
  Report Type: Spontaneous
  Country: US (occurrence: None)
  Receive Date: 20140205
  Receipt Date: 20140205
  Transmission Date: 20141002
  Serious: Yes (Other)
  Sender: FDA-Public Use
  Company Number: IMP_07212_2014

PATIENT
  Age: 27 Year
  Sex: Female

DRUGS (5)
  1. ALPRAZOLAM [Suspect]
     Dosage: DF
  2. METHADONE [Suspect]
     Dosage: DF
  3. AMPHETAMINE [Suspect]
     Dosage: DF
  4. THC HOMOLOG [Suspect]
     Dosage: DF
  5. CITALOPRAM [Suspect]
     Dosage: DF

REACTIONS (6)
  - Poisoning [None]
  - Exposure via ingestion [None]
  - Exposure via inhalation [None]
  - Cardiac arrest [None]
  - Respiratory arrest [None]
  - Completed suicide [None]
